FAERS Safety Report 9457680 (Version 1)
Quarter: 2013Q3

REPORT INFORMATION
  Report Type: Spontaneous
  Country: US (occurrence: US)
  Receive Date: 20130814
  Receipt Date: 20130814
  Transmission Date: 20140515
  Serious: No
  Sender: FDA-Public Use
  Company Number: US-BAYER-2013-097956

PATIENT
  Age: 52 Year
  Sex: Male
  Weight: 92.97 kg

DRUGS (2)
  1. ALEVE CAPLET [Suspect]
     Indication: HEADACHE
     Dosage: 2 DF, BID
     Route: 048
     Dates: start: 20130809, end: 20130811
  2. BAYER ASPIRIN FAST RELEASE POWDER [Concomitant]

REACTIONS (2)
  - Drug ineffective [None]
  - Incorrect dose administered [None]
